FAERS Safety Report 7981590-9 (Version None)
Quarter: 2011Q4

REPORT INFORMATION
  Report Type: 
  Country: None (occurrence: None)
  Receive Date: 20111213
  Receipt Date: 20111201
  Transmission Date: 20120403
  Serious: Yes (Hospitalization)
  Sender: FDA-Public Use
  Company Number: 2011-4859

PATIENT
  Age: 35 Year
  Sex: Female

DRUGS (1)
  1. SOMATULINE DEPOT [Suspect]
     Indication: HEPATIC CYST
     Dosage: 120 MG (120 MG, 1 IN 28 D), INTRAMUSCULAR
     Route: 030

REACTIONS (2)
  - OFF LABEL USE [None]
  - URINARY TRACT INFECTION [None]
